FAERS Safety Report 21636493 (Version 3)
Quarter: 2022Q4

REPORT INFORMATION
  Report Type: Report from Study
  Country: US (occurrence: US)
  Receive Date: 20221124
  Receipt Date: 20221207
  Transmission Date: 20230112
  Serious: No
  Sender: FDA-Public Use
  Company Number: US-ABBVIE-4211050

PATIENT
  Sex: Female
  Weight: 88 kg

DRUGS (25)
  1. VENCLEXTA [Suspect]
     Active Substance: VENETOCLAX
     Indication: Plasma cell myeloma
     Dosage: 400 MILLIGRAM?FORM STRENGTH - 100 MG
     Route: 048
  2. HYDROCORTISONE [Concomitant]
     Active Substance: HYDROCORTISONE
     Indication: Hypersensitivity
     Dosage: FORM STRENGTH: 100 MG
  3. BIMATOPROST [Concomitant]
     Active Substance: BIMATOPROST
     Indication: Product used for unknown indication
     Dosage: DROPS 0.03% 0.03% DROPS FREQUENCY TEXT: 1 DROP OU EVERY HOUR
  4. LOVASTATIN [Concomitant]
     Active Substance: LOVASTATIN
     Indication: Product used for unknown indication
     Dosage: FORM STRENGTH: 40 MG
     Route: 048
  5. CYANOCOBALAMIN [Concomitant]
     Active Substance: CYANOCOBALAMIN
     Indication: Product used for unknown indication
     Dosage: 1000MCG/ML SOLUTION?1000MCG INTRAMUSCULARLY EVERY MONTH
     Route: 030
  6. FAMOTIDINE [Concomitant]
     Active Substance: FAMOTIDINE
     Indication: Hypersensitivity
     Dosage: 20 MG IV ONCE NEEDED?FORM STRENGTH: 20 MG
  7. EPINEPHRINE [Concomitant]
     Active Substance: EPINEPHRINE
     Indication: Hypersensitivity
     Dosage: STRENGTH: 0.3 MG IM ONCE NEEDED
     Route: 030
  8. METFORMIN [Concomitant]
     Active Substance: METFORMIN HYDROCHLORIDE
     Indication: Product used for unknown indication
     Dosage: FORM STRENGTH: 500 MG
     Route: 048
  9. ACYCLOVIR [Concomitant]
     Active Substance: ACYCLOVIR
     Indication: Infection prophylaxis
     Dosage: FORM STRENGTH: 400 MG
     Route: 048
  10. ZOMETA [Concomitant]
     Active Substance: ZOLEDRONIC ACID
     Indication: Product used for unknown indication
     Dosage: 4MG IV PIGGYBACK ONCE?FREQUENCY: EVERY SIX MONTH
     Route: 042
  11. LOMOTIL [Concomitant]
     Active Substance: ATROPINE SULFATE\DIPHENOXYLATE HYDROCHLORIDE
     Indication: Diarrhoea
     Dosage: 2.5 MG
  12. METHYLPREDNISOLONE [Concomitant]
     Active Substance: METHYLPREDNISOLONE
     Indication: Hypersensitivity
     Dosage: FORM STRENGTH: 125 MG
     Route: 042
  13. CHOLECALCIFEROL [Concomitant]
     Active Substance: CHOLECALCIFEROL
     Indication: Product used for unknown indication
     Dosage: 125MCG 5000 UNIT CAPSULE
  14. ASPIRIN [Concomitant]
     Active Substance: ASPIRIN
     Indication: Product used for unknown indication
     Dosage: FORM STRENGTH: 81 MG
     Route: 048
  15. POTASSIUM CHLORIDE [Concomitant]
     Active Substance: POTASSIUM CHLORIDE
     Indication: Product used for unknown indication
     Dosage: TAKE 10 MEQ A DAY FOR 3 DAYS THEN DAILY
  16. Brimonidine- Timolol [Concomitant]
     Indication: Product used for unknown indication
     Dosage: 0.2%-0.5% DROPS
  17. DEXAMETHASONE [Concomitant]
     Active Substance: DEXAMETHASONE
     Indication: Product used for unknown indication
     Dosage: TAKE 5 TABLETS BY MOUTH AS DIRECTED ON DAYS 1, 8, 15 AND 22?FORM STRENGTH: 4MG
     Route: 048
  18. DEXAMETHASONE [Concomitant]
     Active Substance: DEXAMETHASONE
     Indication: Product used for unknown indication
     Dosage: TAKE ONCE WEEKLY WITH FOOD ON DAYS 8, 15 AND 22 OF EACH CYCLE ?FREQUENCY 1 WEEK?FORM STRENGTH: 4MG
     Route: 048
  19. Lidocaine- Prilocaine [Concomitant]
     Indication: Product used for unknown indication
     Dosage: 1 TOPICAL APPLICATION TOPICALLY USE AS DIRECTED NEEDED
     Route: 061
  20. Lidocaine- Prilocaine [Concomitant]
     Indication: Product used for unknown indication
     Dosage: 1 TOPICAL APPLICATION TOPICALLY USE AS DIRECTED NEEDED?FREQUENCY TEXT: 2.5%-2.5% CREAM
  21. BISOPROLOL FUMARATE\HYDROCHLOROTHIAZIDE [Concomitant]
     Active Substance: BISOPROLOL FUMARATE\HYDROCHLOROTHIAZIDE
     Indication: Product used for unknown indication
     Dosage: 5MG -6.25MG
     Route: 048
  22. DARZALEX [Concomitant]
     Active Substance: DARATUMUMAB
     Indication: Product used for unknown indication
     Dosage: STRENGTH:1400MG INTRAVENOUSLY PIGGYBACK ONCE
     Route: 042
  23. DIPHENHYDRAMINE [Concomitant]
     Active Substance: DIPHENHYDRAMINE
     Indication: Hypersensitivity
     Dosage: STRENGTH: 25 MG IV PUSH ONCE. ADMINISTER IV OR PO 1 HOUR PRIOR TO DARATUMUMAB INFUSION
  24. DIPHENHYDRAMINE [Concomitant]
     Active Substance: DIPHENHYDRAMINE
     Indication: Hypersensitivity
     Dosage: STRENGTH: 50MG
  25. ACETAMINOPHEN [Concomitant]
     Active Substance: ACETAMINOPHEN
     Indication: Product used for unknown indication
     Dosage: FORM STRENGTH: 325 MG?TAKE 2 TABLETS ORALLY ONCE. 1 HOUR PRIOR TO DARATUMUMAB INFUSION

REACTIONS (1)
  - Off label use [Unknown]
